FAERS Safety Report 9570612 (Version 2)
Quarter: 2013Q4

REPORT INFORMATION
  Report Type: Report from Study
  Country: BR (occurrence: BR)
  Receive Date: 20131001
  Receipt Date: 20131001
  Transmission Date: 20140711
  Serious: Yes (Hospitalization, Other)
  Sender: FDA-Public Use
  Company Number: BR-ROCHE-1073414

PATIENT
  Sex: Female
  Weight: 60 kg

DRUGS (11)
  1. RITUXIMAB [Suspect]
     Indication: AUTOIMMUNE DISORDER
     Dosage: LATEST INFUSION OF RITUXIMAB : 12/MAR/2013
     Route: 042
     Dates: start: 20090601, end: 201202
  2. RITUXIMAB [Suspect]
     Indication: RHEUMATOID ARTHRITIS
  3. ATENOLOL [Concomitant]
     Route: 065
  4. METICORTEN [Concomitant]
     Route: 065
  5. ASPIRIN [Concomitant]
     Route: 065
  6. FOLIC ACID [Concomitant]
     Indication: ANAEMIA
  7. OMEPRAZOLE [Concomitant]
     Route: 065
  8. DEPURAN [Concomitant]
  9. CHLOROQUINE [Concomitant]
  10. TECNOMET [Concomitant]
  11. CORDAREX [Concomitant]

REACTIONS (6)
  - Diarrhoea [Recovered/Resolved]
  - Vomiting [Recovered/Resolved]
  - Herpes zoster [Recovering/Resolving]
  - Retinal degeneration [Unknown]
  - Skin disorder [Not Recovered/Not Resolved]
  - Cholelithiasis [Unknown]
